FAERS Safety Report 6369600-6 (Version None)
Quarter: 2009Q3

REPORT INFORMATION
  Report Type: 
  Country: None (occurrence: None)
  Receive Date: 20090923
  Receipt Date: 20090923
  Transmission Date: 20100115
  Serious: Yes (Hospitalization, Other)
  Sender: FDA-Public Use
  Company Number: PHHO2009TR02247

PATIENT
  Sex: Male
  Weight: 81 kg

DRUGS (3)
  1. ALISKIREN ALI+TAB+HT [Suspect]
     Dosage: 150 MG, QD
     Route: 048
     Dates: start: 20090203, end: 20090204
  2. ALISKIREN ALI+TAB+HT [Suspect]
     Dosage: UNK
     Dates: start: 20090205
  3. AMLODIPINE [Suspect]
     Dosage: 5 MG, QD

REACTIONS (4)
  - CONCOMITANT DISEASE PROGRESSION [None]
  - HEADACHE [None]
  - NASAL OPERATION [None]
  - NASAL SEPTUM DEVIATION [None]
